FAERS Safety Report 7082553-0 (Version None)
Quarter: 2010Q3

REPORT INFORMATION
  Report Type: 
  Country: None (occurrence: None)
  Receive Date: 20100929
  Receipt Date: 20100707
  Transmission Date: 20110219
  Serious: No
  Sender: FDA-Public Use
  Company Number: US-WYE-H16217210

PATIENT
  Sex: Male

DRUGS (1)
  1. PRISTIQ [Suspect]
     Dosage: 50MG 1X PER 1 DAY ORAL
     Route: 048
     Dates: start: 20100703

REACTIONS (3)
  - GLOSSODYNIA [None]
  - PARAESTHESIA ORAL [None]
  - THROAT IRRITATION [None]
